FAERS Safety Report 5012933-6 (Version None)
Quarter: 2006Q2

REPORT INFORMATION
  Report Type: 
  Country: None (occurrence: None)
  Receive Date: 20060525
  Receipt Date: 20060504
  Transmission Date: 20061013
  Serious: Yes (Hospitalization)
  Sender: FDA-Public Use
  Company Number: US200605001270

PATIENT
  Age: 80 Year
  Sex: Female

DRUGS (10)
  1. FORTEO [Suspect]
     Indication: OSTEOPOROSIS
     Dosage: 20 UG
  2. FORTEO PEN (FORTEO PEN) [Concomitant]
  3. LEXAPRO /USA/  (ESCITALOPRAM) [Concomitant]
  4. LIPITOR [Concomitant]
  5. ZINC (ZINC) [Concomitant]
  6. ASCORBIC ACID [Concomitant]
  7. GLUCOPHAGE [Concomitant]
  8. MULTIVITAMIN [Concomitant]
  9. CALTRATE (CALCIUM CARBONATE) [Concomitant]
  10. VASOTEC [Concomitant]

REACTIONS (2)
  - DECUBITUS ULCER [None]
  - PHARMACEUTICAL PRODUCT COMPLAINT [None]
